FAERS Safety Report 23623588 (Version 1)
Quarter: 2024Q1

REPORT INFORMATION
  Report Type: Spontaneous
  Country: AU (occurrence: AU)
  Receive Date: 20240312
  Receipt Date: 20240312
  Transmission Date: 20240409
  Serious: Yes (Hospitalization)
  Sender: FDA-Public Use
  Company Number: AU-TAKEDA-2024TUS021565

PATIENT
  Age: 95 Year
  Sex: Male

DRUGS (1)
  1. PANTOPRAZOLE [Suspect]
     Active Substance: PANTOPRAZOLE
     Indication: Dyspepsia
     Dosage: UNK
     Route: 048

REACTIONS (2)
  - Hypocalcaemia [Recovered/Resolved with Sequelae]
  - Symptom recurrence [Recovered/Resolved with Sequelae]

NARRATIVE: CASE EVENT DATE: 20220227
